FAERS Safety Report 5589219-4 (Version None)
Quarter: 2008Q1

REPORT INFORMATION
  Report Type: 
  Country: None (occurrence: None)
  Receive Date: 20080109
  Receipt Date: 20080109
  Transmission Date: 20080703
  Serious: Yes (Life-Threatening, Hospitalization, Disabling, Congenital Anomaly)
  Sender: FDA-Public Use
  Company Number: None

PATIENT
  Sex: Male
  Weight: 2.7216 kg

DRUGS (2)
  1. DELALUTIN [Suspect]
     Dosage: 250 MG  1 INJECTION/WEEK  INTRAMUSCULAR (DATES OF USE: GESTATION WK )
     Route: 030
  2. ALCOHOL/RED WINE   ~12.2% ABSOLUTE ALCOHOL    UNKNOWN [Suspect]
     Indication: ALCOHOL USE
     Dosage: 0.5 OUNCES WINE   ONE SIP  ORAL (DATES OF USE: SIP AT 8-9)
     Route: 048

REACTIONS (1)
  - ALCOHOL INTERACTION [None]
